FAERS Safety Report 13349670 (Version 2)
Quarter: 2017Q1

REPORT INFORMATION
  Report Type: Spontaneous
  Country: JP (occurrence: JP)
  Receive Date: 20170320
  Receipt Date: 20170324
  Transmission Date: 20170429
  Serious: Yes (Hospitalization)
  Sender: FDA-Public Use
  Company Number: JP-ORION CORPORATION ORION PHARMA-ENT 2017-0048

PATIENT
  Age: 74 Year
  Sex: Male

DRUGS (8)
  1. PRAMIPEXOLE. [Suspect]
     Active Substance: PRAMIPEXOLE
     Indication: PARKINSON^S DISEASE
     Route: 048
  2. MENESIT [Concomitant]
     Active Substance: CARBIDOPA\LEVODOPA
     Route: 065
  3. PERGOLIDE [Concomitant]
     Active Substance: PERGOLIDE
     Route: 065
  4. ROPINIROLE. [Concomitant]
     Active Substance: ROPINIROLE
     Route: 065
  5. COMTAN [Suspect]
     Active Substance: ENTACAPONE
     Indication: PARKINSON^S DISEASE
     Route: 048
  6. YOKUKANSAN [Concomitant]
     Active Substance: HERBALS
     Route: 065
  7. QUETIAPINE. [Concomitant]
     Active Substance: QUETIAPINE
     Route: 065
  8. RISPERIDONE. [Concomitant]
     Active Substance: RISPERIDONE
     Route: 065

REACTIONS (7)
  - Persecutory delusion [Unknown]
  - Verbal abuse [Unknown]
  - Clavicle fracture [Unknown]
  - Aggression [Unknown]
  - Hallucination [Unknown]
  - Fall [Unknown]
  - Psychomotor hyperactivity [Unknown]
